FAERS Safety Report 17337949 (Version 3)
Quarter: 2020Q2

REPORT INFORMATION
  Report Type: Report from Study
  Country: DK (occurrence: DK)
  Receive Date: 20200129
  Receipt Date: 20200428
  Transmission Date: 20200713
  Serious: Yes (Other)
  Sender: FDA-Public Use
  Company Number: DK-ROCHE-2532426

PATIENT

DRUGS (2)
  1. CAPECITABINE. [Suspect]
     Active Substance: CAPECITABINE
     Indication: COLORECTAL CANCER
     Dosage: DAY 1-14, EVERY 3 WEEKS AS ONE CYCLE
     Route: 048
  2. IRINOTECAN [Concomitant]
     Active Substance: IRINOTECAN
     Indication: COLORECTAL CANCER
     Route: 042

REACTIONS (3)
  - Electrocardiogram ST segment depression [Unknown]
  - Angina unstable [Unknown]
  - Electrocardiogram T wave inversion [Unknown]
